FAERS Safety Report 9441003 (Version 2)
Quarter: 2019Q4

REPORT INFORMATION
  Report Type: Spontaneous
  Country: US (occurrence: US)
  Receive Date: 20130805
  Receipt Date: 20191219
  Transmission Date: 20200122
  Serious: Yes (Hospitalization)
  Sender: FDA-Public Use
  Company Number: US-UCBSA-093471

PATIENT
  Age: 57 Year
  Sex: Male

DRUGS (13)
  1. RANITIDINE. [Concomitant]
     Active Substance: RANITIDINE
     Indication: GASTROOESOPHAGEAL REFLUX DISEASE
     Dosage: 300 MG, ONCE DAILY (QD)
     Route: 048
     Dates: start: 2000
  2. FLOMAX [Concomitant]
     Active Substance: TAMSULOSIN HYDROCHLORIDE
     Indication: URINARY RETENTION
     Dosage: .4 MG, ONCE DAILY (QD)
     Route: 048
     Dates: start: 201301
  3. PENTASA [Concomitant]
     Active Substance: MESALAMINE
     Indication: CROHN^S DISEASE
     Dosage: 1000 MG, ONCE DAILY (QD)
     Route: 048
     Dates: start: 1999
  4. ZOLOFT [Concomitant]
     Active Substance: SERTRALINE HYDROCHLORIDE
     Indication: DEPRESSION
     Dosage: 100 MG, ONCE DAILY (QD)
     Route: 048
     Dates: start: 2000
  5. FENTANYL. [Concomitant]
     Active Substance: FENTANYL
     Indication: CROHN^S DISEASE
     Dosage: 100 ?G, EV 3 DAYS
     Route: 062
     Dates: start: 2011
  6. MORPHINE LIQUID [Concomitant]
     Indication: CROHN^S DISEASE
     Dosage: TAKES 1.5ML ONCE 4HRS FOR BREAK THROUGH PAIN PRN
     Route: 048
     Dates: start: 201301
  7. MORPHINE ER [Concomitant]
     Active Substance: MORPHINE
     Indication: CROHN^S DISEASE
     Dosage: 60 MG, 3X/DAY (TID)
     Route: 048
     Dates: start: 2008
  8. CIMZIA [Suspect]
     Active Substance: CERTOLIZUMAB PEGOL
     Indication: CROHN^S DISEASE
     Dosage: 400 MG, EV 4 WEEKS
     Route: 058
     Dates: start: 2010
  9. PREDNISONE. [Concomitant]
     Active Substance: PREDNISONE
     Indication: CROHN^S DISEASE
     Dosage: CURRENT DOSING 30 MG BUT HAS BEEN ON VARIOUS DOSINGS
     Route: 048
     Dates: start: 1999
  10. ADDERALL [Concomitant]
     Active Substance: AMPHETAMINE ASPARTATE\AMPHETAMINE SULFATE\DEXTROAMPHETAMINE SACCHARATE\DEXTROAMPHETAMINE SULFATE
     Indication: CENTRAL NERVOUS SYSTEM STIMULATION
     Dosage: 20 MG, ONCE DAILY (QD)
     Route: 048
     Dates: start: 2011
  11. FIORICET [Concomitant]
     Active Substance: ACETAMINOPHEN\BUTALBITAL\CAFFEINE
     Indication: MIGRAINE
     Dosage: DOSE: PRN
     Route: 048
  12. IMURAN [Concomitant]
     Active Substance: AZATHIOPRINE
     Dosage: 200 MG, ONCE DAILY (QD)
     Route: 048
     Dates: start: 1999
  13. ZOFRAN [Concomitant]
     Active Substance: ONDANSETRON HYDROCHLORIDE
     Indication: PROPHYLAXIS OF NAUSEA AND VOMITING
     Dosage: USALLY TWO TIMES
     Route: 048
     Dates: start: 2012

REACTIONS (6)
  - Headache [Recovered/Resolved]
  - Weight decreased [Not Recovered/Not Resolved]
  - Sepsis [Recovering/Resolving]
  - Malnutrition [Not Recovered/Not Resolved]
  - Abdominal pain [Unknown]
  - Drug ineffective [Not Recovered/Not Resolved]

NARRATIVE: CASE EVENT DATE: 2012
